FAERS Safety Report 9789708 (Version 1)
Quarter: 2013Q4

REPORT INFORMATION
  Report Type: Spontaneous
  Country: IT (occurrence: None)
  Receive Date: 20131227
  Receipt Date: 20131227
  Transmission Date: 20140711
  Serious: Yes (Hospitalization)
  Sender: FDA-Public Use
  Company Number: IT2013K5445SPO

PATIENT
  Age: 86 Year
  Sex: Female

DRUGS (1)
  1. LANSOPRAZOLE [Suspect]
     Route: 048
     Dates: start: 20130617, end: 20130712

REACTIONS (5)
  - Asthenia [None]
  - Diarrhoea [None]
  - Hypokalaemic syndrome [None]
  - Hyponatraemic syndrome [None]
  - Vomiting [None]
